FAERS Safety Report 10511140 (Version 2)
Quarter: 2014Q4

REPORT INFORMATION
  Report Type: Spontaneous
  Country: US (occurrence: US)
  Receive Date: 20141010
  Receipt Date: 20141031
  Transmission Date: 20150528
  Serious: No
  Sender: FDA-Public Use
  Company Number: US-BAYER-2014-147434

PATIENT
  Age: 46 Year
  Sex: Female

DRUGS (2)
  1. CLIMARA [Suspect]
     Active Substance: ESTRADIOL
     Indication: HORMONE REPLACEMENT THERAPY
     Dosage: 1 MG
     Route: 062
     Dates: start: 201406
  2. CLIMARA [Suspect]
     Active Substance: ESTRADIOL
     Indication: HORMONE REPLACEMENT THERAPY
     Dosage: 0.5 MG
     Route: 062
     Dates: start: 2014

REACTIONS (7)
  - Lethargy [None]
  - Product size issue [None]
  - Drug ineffective [None]
  - Off label use [None]
  - Crying [None]
  - Poor quality sleep [None]
  - Fatigue [None]

NARRATIVE: CASE EVENT DATE: 201409
